FAERS Safety Report 8381191-7 (Version None)
Quarter: 2012Q2

REPORT INFORMATION
  Report Type: 
  Country: None (occurrence: None)
  Receive Date: 20120522
  Receipt Date: 20120510
  Transmission Date: 20120825
  Serious: Yes (Other)
  Sender: FDA-Public Use
  Company Number: ADR-2012-00916

PATIENT
  Age: 64 Year
  Sex: Male
  Weight: 63 kg

DRUGS (3)
  1. LIORESAL [Concomitant]
  2. BACLOFEN [Suspect]
     Dosage: 50 MCG/DAY
  3. LIVALO [Concomitant]

REACTIONS (2)
  - HEADACHE [None]
  - ECZEMA [None]
